FAERS Safety Report 5044998-X (Version None)
Quarter: 2006Q3

REPORT INFORMATION
  Report Type: 
  Country: None (occurrence: None)
  Receive Date: 20060705
  Receipt Date: 20060613
  Transmission Date: 20061208
  Serious: Yes (Hospitalization)
  Sender: FDA-Public Use
  Company Number: US200606003083

PATIENT
  Sex: Female

DRUGS (6)
  1. HUMALOG [Suspect]
     Indication: GESTATIONAL DIABETES
     Dosage: 3/D
     Dates: start: 20020101
  2. CRESTOR [Concomitant]
  3. IBANDRONATE SODIUM [Concomitant]
  4. CALCIUM GLUCONATE [Concomitant]
  5. VITAMIN D [Concomitant]
  6. LANTUS [Concomitant]

REACTIONS (4)
  - BLOOD CHOLESTEROL INCREASED [None]
  - BLOOD GLUCOSE INCREASED [None]
  - OSTEOMYELITIS [None]
  - PHARMACEUTICAL PRODUCT COMPLAINT [None]
